FAERS Safety Report 24972879 (Version 2)
Quarter: 2025Q3

REPORT INFORMATION
  Report Type: Spontaneous
  Country: US (occurrence: US)
  Receive Date: 20250215
  Receipt Date: 20250813
  Transmission Date: 20251020
  Serious: No
  Sender: CSL BEHRING
  Company Number: US-BEH-2025195286

PATIENT
  Sex: Female

DRUGS (4)
  1. HIZENTRA [Suspect]
     Active Substance: HUMAN IMMUNOGLOBULIN G
     Indication: Hypogammaglobulinaemia
     Dosage: 4 G, QW
     Route: 058
     Dates: start: 202409
  2. HIZENTRA [Suspect]
     Active Substance: HUMAN IMMUNOGLOBULIN G
     Indication: Hypogammaglobulinaemia
     Dosage: 4 G, QW
     Route: 058
     Dates: start: 202409
  3. HIZENTRA [Suspect]
     Active Substance: HUMAN IMMUNOGLOBULIN G
     Indication: Multiple sclerosis
     Dosage: 2 G, QW
     Route: 058
     Dates: start: 202409
  4. HIZENTRA [Suspect]
     Active Substance: HUMAN IMMUNOGLOBULIN G
     Indication: Multiple sclerosis
     Dosage: 2 G, QW
     Route: 058
     Dates: start: 202409

REACTIONS (6)
  - Malabsorption from injection site [Unknown]
  - Product administration interrupted [Unknown]
  - Illness [Unknown]
  - Infection [Unknown]
  - Decreased appetite [Unknown]
  - Product use in unapproved indication [Unknown]
